FAERS Safety Report 8972547 (Version 1)
Quarter: 2012Q4

REPORT INFORMATION
  Report Type: 
  Country: US (occurrence: US)
  Receive Date: 20121218
  Receipt Date: 20121218
  Transmission Date: 20130627
  Serious: No
  Sender: FDA-Public Use
  Company Number: US-PFIZER INC-2012320425

PATIENT
  Age: 59 Year
  Sex: Female
  Weight: 61.22 kg

DRUGS (7)
  1. LYRICA [Suspect]
     Indication: NERVE PAIN
     Dosage: 75 mg, 1x/day at night
     Route: 048
     Dates: end: 20121205
  2. OXYCONTIN [Concomitant]
     Dosage: 60 mg, 3x/day
  3. OXYCODONE/ACETAMINOPHEN [Concomitant]
     Dosage: 10/325 mg, 4x/day
  4. FLEXERIL [Concomitant]
     Dosage: UNK, 3x/day
  5. CYMBALTA [Concomitant]
     Dosage: 60 mg, 1x/day
  6. OMEPRAZOLE [Concomitant]
     Dosage: 20 mg, 1x/day in morning
  7. LISINOPRIL [Concomitant]
     Dosage: UNK

REACTIONS (1)
  - Pain [Unknown]
